FAERS Safety Report 25378703 (Version 2)
Quarter: 2025Q2

REPORT INFORMATION
  Report Type: Spontaneous
  Country: TZ (occurrence: TZ)
  Receive Date: 20250530
  Receipt Date: 20250609
  Transmission Date: 20250717
  Serious: Yes (Other)
  Sender: UNICHEM
  Company Number: TZ-UNICHEM LABORATORIES LIMITED-UNI-2025-TZ-002348

PATIENT

DRUGS (2)
  1. PHENYTOIN SODIUM [Suspect]
     Active Substance: PHENYTOIN SODIUM
     Indication: Seizure
     Route: 065
  2. MIDAZOLAM [Suspect]
     Active Substance: MIDAZOLAM
     Indication: Seizure
     Route: 065

REACTIONS (3)
  - Caesarean section [Unknown]
  - Drug ineffective [Unknown]
  - Exposure during pregnancy [Unknown]
